FAERS Safety Report 9739242 (Version 1)
Quarter: 2013Q4

REPORT INFORMATION
  Report Type: Spontaneous
  Country: US (occurrence: US)
  Receive Date: 20131206
  Receipt Date: 20131206
  Transmission Date: 20140711
  Serious: No
  Sender: FDA-Public Use
  Company Number: US-GILEAD-2009-0022869

PATIENT
  Age: 84 Year
  Sex: Female

DRUGS (12)
  1. LETAIRIS [Suspect]
     Indication: PULMONARY ARTERIAL HYPERTENSION
     Route: 048
  2. LETAIRIS [Suspect]
     Route: 048
  3. LETAIRIS [Suspect]
     Route: 048
  4. FUROSEMIDE [Concomitant]
  5. LOVASTATIN [Concomitant]
  6. PLAVIX [Concomitant]
  7. DESIPRAMINE [Concomitant]
  8. ASPIRIN [Concomitant]
  9. LORATADINE [Concomitant]
  10. MECLIZINE [Concomitant]
  11. PRILOSEC [Concomitant]
  12. POTASSIUM [Concomitant]

REACTIONS (2)
  - Headache [Recovered/Resolved]
  - Oedema peripheral [Recovered/Resolved]
